FAERS Safety Report 9767296 (Version 2)
Quarter: 2014Q1

REPORT INFORMATION
  Report Type: Report from Study
  Country: DE (occurrence: DE)
  Receive Date: 20131217
  Receipt Date: 20140114
  Transmission Date: 20141002
  Serious: Yes (Hospitalization)
  Sender: FDA-Public Use
  Company Number: DE-ROCHE-1313852

PATIENT
  Age: 62 Year
  Sex: Male
  Weight: 94.3 kg

DRUGS (9)
  1. VEMURAFENIB [Suspect]
     Indication: MALIGNANT MELANOMA
     Route: 048
     Dates: start: 20131002
  2. ASS [Concomitant]
     Indication: CORONARY ARTERY DISEASE
     Route: 048
     Dates: start: 200506
  3. CLOPIDOGREL [Concomitant]
     Indication: CORONARY ARTERY DISEASE
     Route: 048
     Dates: start: 201303
  4. BELOC-ZOK [Concomitant]
     Indication: HYPERTENSION
     Route: 048
     Dates: start: 200501
  5. ATORVASTATIN [Concomitant]
     Indication: PROPHYLAXIS
     Route: 048
     Dates: start: 200501
  6. RAMIPRIL [Concomitant]
     Indication: HYPERTENSION
     Route: 048
     Dates: start: 200501
  7. HYDROCHLOROTHIAZIDE [Concomitant]
     Indication: HYPERTENSION
     Route: 048
     Dates: start: 200501
  8. METAMIZOL [Concomitant]
     Indication: MALAISE
     Route: 048
     Dates: start: 20130815
  9. PLACEBO [Suspect]
     Indication: MALIGNANT MELANOMA
     Route: 048
     Dates: start: 20131002

REACTIONS (2)
  - General physical health deterioration [Recovered/Resolved]
  - Biopsy [Recovered/Resolved]
